FAERS Safety Report 10189492 (Version 2)
Quarter: 2014Q2

REPORT INFORMATION
  Report Type: Report from Study
  Country: US (occurrence: US)
  Receive Date: 20140522
  Receipt Date: 20140522
  Transmission Date: 20141212
  Serious: Yes (Hospitalization, Other)
  Sender: FDA-Public Use
  Company Number: PHEH2014US003234

PATIENT
  Age: 40 Year
  Sex: Female
  Weight: 77.98 kg

DRUGS (9)
  1. GILENYA [Suspect]
     Indication: MULTIPLE SCLEROSIS
     Dosage: 0.5 MG, QD
     Route: 048
     Dates: start: 20121004
  2. GILENYA [Suspect]
     Dosage: 0.5 MG, QD
     Route: 048
  3. LOMOTIL                            /00034001/ [Concomitant]
  4. BUDESONIDE [Concomitant]
  5. CHOLESTYRAMIN [Concomitant]
  6. TRAMADOL [Concomitant]
  7. OMEPRAZOLE [Concomitant]
  8. BALSALAZIDE [Concomitant]
  9. VITAMIN D [Concomitant]

REACTIONS (4)
  - Crohn^s disease [Recovering/Resolving]
  - Diarrhoea [Recovering/Resolving]
  - Weight decreased [Recovering/Resolving]
  - Abdominal pain [Recovering/Resolving]
